FAERS Safety Report 8168560-5 (Version None)
Quarter: 2012Q1

REPORT INFORMATION
  Report Type: 
  Country: None (occurrence: None)
  Receive Date: 20120227
  Receipt Date: 20120227
  Transmission Date: 20120608
  Serious: Yes (Life-Threatening, Other)
  Sender: FDA-Public Use
  Company Number: None

PATIENT
  Age: 37 Year
  Sex: Male
  Weight: 84.821 kg

DRUGS (1)
  1. BACTRIM DS [Suspect]
     Indication: SKIN INFECTION
     Dosage: TWICE
     Route: 048
     Dates: start: 20120221, end: 20120223

REACTIONS (2)
  - URTICARIA [None]
  - DYSPNOEA [None]
